FAERS Safety Report 5022960-0 (Version None)
Quarter: 2006Q2

REPORT INFORMATION
  Report Type: 
  Country: None (occurrence: None)
  Receive Date: 20060426
  Receipt Date: 20060320
  Transmission Date: 20061013
  Serious: Yes (Other)
  Sender: FDA-Public Use
  Company Number: 2006039569

PATIENT
  Age: 80 Year
  Sex: Female
  Weight: 80.7403 kg

DRUGS (3)
  1. LYRICA [Suspect]
     Indication: POST HERPETIC NEURALGIA
     Dosage: 100 MG (50 MG, 2 IN 1 D), ORAL
     Route: 048
     Dates: start: 20060317, end: 20060317
  2. ATENOLOL [Concomitant]
  3. VITAMINS (VITAMINS) [Concomitant]

REACTIONS (3)
  - READING DISORDER [None]
  - SCOTOMA [None]
  - VISUAL DISTURBANCE [None]
